FAERS Safety Report 9507550 (Version 1)
Quarter: 2013Q3

REPORT INFORMATION
  Report Type: Spontaneous
  Country: US (occurrence: US)
  Receive Date: 20130909
  Receipt Date: 20130909
  Transmission Date: 20140515
  Serious: Yes (Life-Threatening, Hospitalization, Other)
  Sender: FDA-Public Use
  Company Number: US-CELGENEUS-163-20785-13090544

PATIENT
  Age: 80 Year
  Sex: Male

DRUGS (2)
  1. THALOMID [Suspect]
     Indication: PLASMA CELL MYELOMA
     Dosage: 100 MILLIGRAM
     Route: 048
     Dates: start: 20130808
  2. ALKERAN [Concomitant]
     Indication: PLASMA CELL MYELOMA
     Dosage: 24 MILLIGRAM
     Route: 048
     Dates: start: 20130808

REACTIONS (3)
  - Gastrointestinal disorder [Recovered/Resolved]
  - Anaemia [Recovered/Resolved]
  - Full blood count decreased [Unknown]
